FAERS Safety Report 13043424 (Version 3)
Quarter: 2025Q3

REPORT INFORMATION
  Report Type: Report from Study
  Country: GH (occurrence: GH)
  Receive Date: 20161220
  Receipt Date: 20250730
  Transmission Date: 20251021
  Serious: Yes (Death, Other)
  Sender: AUROBINDO
  Company Number: GH-AUROBINDO-AUR-APL-2016-15670

PATIENT

DRUGS (1)
  1. LAMIVUDINE [Suspect]
     Active Substance: LAMIVUDINE
     Indication: HIV infection
     Route: 065

REACTIONS (1)
  - Hepatotoxicity [Fatal]
